FAERS Safety Report 4693991-5 (Version None)
Quarter: 2005Q2

REPORT INFORMATION
  Report Type: 
  Country: None (occurrence: None)
  Receive Date: 20050616
  Receipt Date: 20050606
  Transmission Date: 20051028
  Serious: Yes (Other)
  Sender: FDA-Public Use
  Company Number: 2005086574

PATIENT
  Age: 67 Year
  Sex: Female
  Weight: 90.7194 kg

DRUGS (18)
  1. FELDENE [Suspect]
     Indication: ARTHRITIS
     Dosage: 20 MG (20 MG, 1 IN 1 D)
     Dates: start: 19920101
  2. PIROXICAM [Suspect]
     Indication: ARTHRITIS
     Dosage: 20 MG (20 MG, 1 IN 1 D)
     Dates: start: 19960101
  3. COUMADIN [Concomitant]
  4. VERAPAMIL [Concomitant]
  5. ZETIA [Concomitant]
  6. CRESTOR [Concomitant]
  7. INDERAL ^WYETH-AYERST^ (PROPRANOLOL HYDROCHLORIDE) [Concomitant]
  8. PROTONIX [Concomitant]
  9. ESTRACE [Concomitant]
  10. SYNTHROID [Concomitant]
  11. AMAYRYL (GLIMEPIRIDE) [Concomitant]
  12. LANTUS [Concomitant]
  13. HUMALOG [Concomitant]
  14. CLARITIN [Concomitant]
  15. MULTIVITAMIN [Concomitant]
  16. VITAMIN C (VITAMIN C) [Concomitant]
  17. VITAMIN E [Concomitant]
  18. FOLIC ACID [Concomitant]

REACTIONS (9)
  - ANKLE FRACTURE [None]
  - ARTHROPATHY [None]
  - CARDIAC OPERATION [None]
  - CONDITION AGGRAVATED [None]
  - DRUG INEFFECTIVE [None]
  - FALL [None]
  - HAND FRACTURE [None]
  - PAIN [None]
  - THERAPEUTIC RESPONSE UNEXPECTED WITH DRUG SUBSTITUTION [None]
